FAERS Safety Report 6616946-X (Version None)
Quarter: 2010Q1

REPORT INFORMATION
  Report Type: 
  Country: None (occurrence: None)
  Receive Date: 20100301
  Receipt Date: 20100225
  Transmission Date: 20100710
  Serious: Yes (Hospitalization)
  Sender: FDA-Public Use
  Company Number: SP02811

PATIENT
  Age: 78 Year
  Sex: Female

DRUGS (9)
  1. OSMOPREP [Suspect]
     Indication: BOWEL PREPARATION
     Dosage: ORAL
     Route: 048
     Dates: start: 20091014
  2. LEVOTHYROXINE SODIUM [Concomitant]
  3. ENDEP [Concomitant]
  4. ATENOLOL [Concomitant]
  5. MINAX [Concomitant]
  6. ADALAT [Concomitant]
  7. ATACAND HCT [Concomitant]
  8. COLESE [Concomitant]
  9. NEXIUM [Concomitant]

REACTIONS (4)
  - DIZZINESS [None]
  - HEADACHE [None]
  - HEART RATE INCREASED [None]
  - HYPOKALAEMIA [None]
